FAERS Safety Report 9402584 (Version 1)
Quarter: 2013Q3

REPORT INFORMATION
  Report Type: Spontaneous
  Country: DK (occurrence: FR)
  Receive Date: 20130716
  Receipt Date: 20130716
  Transmission Date: 20140515
  Serious: Yes (Hospitalization)
  Sender: FDA-Public Use
  Company Number: FR-FRI-1000046680

PATIENT
  Age: 38 Year
  Sex: Male

DRUGS (6)
  1. ESCITALOPRAM [Suspect]
     Route: 048
     Dates: end: 20130304
  2. PEGASYS [Suspect]
     Indication: MYELOFIBROSIS
     Dosage: 90 MCG WEEKLY
     Route: 058
     Dates: start: 20130109, end: 20130213
  3. PARACETAMOL [Concomitant]
     Dates: start: 20130109, end: 20130213
  4. PROZAC [Concomitant]
     Dates: end: 20130524
  5. XANAX [Concomitant]
     Dates: end: 20130524
  6. STILNOX [Concomitant]

REACTIONS (5)
  - Depression [Recovered/Resolved]
  - Suicidal ideation [Recovered/Resolved]
  - Hepatocellular injury [Recovering/Resolving]
  - Neutropenia [Recovered/Resolved]
  - Thrombocytopenia [Recovered/Resolved]
